FAERS Safety Report 8080805-9 (Version None)
Quarter: 2012Q1

REPORT INFORMATION
  Report Type: 
  Country: None (occurrence: None)
  Receive Date: 20120130
  Receipt Date: 20120109
  Transmission Date: 20120608
  Serious: No
  Sender: FDA-Public Use
  Company Number: NL-MEDIMMUNE-MEDI-0014244

PATIENT
  Sex: Male
  Weight: 4.13 kg

DRUGS (2)
  1. SYNAGIS [Suspect]
     Route: 030
     Dates: start: 20111212, end: 20111212
  2. SYNAGIS [Suspect]
     Indication: BRONCHOPULMONARY DYSPLASIA
     Route: 030
     Dates: start: 20110919, end: 20111114

REACTIONS (1)
  - VIRAL INFECTION [None]
